FAERS Safety Report 6305716-8 (Version None)
Quarter: 2009Q3

REPORT INFORMATION
  Report Type: 
  Country: None (occurrence: None)
  Receive Date: 20090812
  Receipt Date: 20090805
  Transmission Date: 20100115
  Serious: Yes (Hospitalization)
  Sender: FDA-Public Use
  Company Number: US-BIOGENIDEC-2009BI012304

PATIENT
  Age: 40 Year
  Sex: Female

DRUGS (4)
  1. TYSABRI [Suspect]
     Indication: CROHN'S DISEASE
     Route: 042
     Dates: start: 20090218
  2. PREDNISONE [Concomitant]
     Indication: CROHN'S DISEASE
     Route: 048
  3. PREDNISONE [Concomitant]
     Indication: POLYARTHRITIS
     Route: 048
  4. PREDNISONE [Concomitant]
     Indication: SCLERITIS
     Route: 048

REACTIONS (13)
  - APHTHOUS STOMATITIS [None]
  - ASTHENIA [None]
  - BACK PAIN [None]
  - BALANCE DISORDER [None]
  - CONSTIPATION [None]
  - CROHN'S DISEASE [None]
  - DEHYDRATION [None]
  - GASTROENTERITIS SALMONELLA [None]
  - HEPATIC LESION [None]
  - LEUKOCYTOSIS [None]
  - MUSCULAR WEAKNESS [None]
  - POLYARTHRITIS [None]
  - SCLERITIS [None]
